FAERS Safety Report 7444331-X (Version None)
Quarter: 2011Q2

REPORT INFORMATION
  Report Type: 
  Country: None (occurrence: None)
  Receive Date: 20110419
  Receipt Date: 20110411
  Transmission Date: 20111010
  Serious: Yes (Hospitalization)
  Sender: FDA-Public Use
  Company Number: VISP-NO-1104S-0138

PATIENT
  Age: 18 Year
  Sex: Female

DRUGS (6)
  1. ULTIVA [Concomitant]
  2. VISIPAQUE [Suspect]
     Indication: ARTERIOVENOUS MALFORMATION
     Dosage: NR, SINGLE DOSE
     Dates: start: 20110222, end: 20110222
  3. EPHEDRINE [Concomitant]
  4. DIPRIVAN [Concomitant]
  5. NIMBEX [Concomitant]
  6. HEPARIN SODIUM [Concomitant]

REACTIONS (3)
  - FACTITIOUS DISORDER [None]
  - VISUAL ACUITY REDUCED [None]
  - DIPLOPIA [None]
